FAERS Safety Report 19268951 (Version 1)
Quarter: 2021Q2

REPORT INFORMATION
  Report Type: Spontaneous
  Country: US (occurrence: US)
  Receive Date: 20210517
  Receipt Date: 20210517
  Transmission Date: 20210717
  Serious: Yes (Other)
  Sender: FDA-Public Use
  Company Number: US-PFIZER INC-2021493349

PATIENT
  Age: 31 Year
  Sex: Male

DRUGS (1)
  1. XELJANZ XR [Suspect]
     Active Substance: TOFACITINIB CITRATE
     Indication: ARTHRITIS
     Dosage: UNK

REACTIONS (10)
  - Condition aggravated [Unknown]
  - Drug ineffective [Unknown]
  - Acne [Unknown]
  - Product residue present [Unknown]
  - Intentional dose omission [Unknown]
  - Frequent bowel movements [Unknown]
  - Intestinal anastomosis [Unknown]
  - Pain [Unknown]
  - Skin lesion [Unknown]
  - Off label use [Unknown]
